FAERS Safety Report 17922575 (Version 2)
Quarter: 2020Q3

REPORT INFORMATION
  Report Type: Spontaneous
  Country: US (occurrence: US)
  Receive Date: 20200622
  Receipt Date: 20200710
  Transmission Date: 20201103
  Serious: Yes (Other)
  Sender: FDA-Public Use
  Company Number: US-PFIZER INC-2020239531

PATIENT
  Age: 58 Year
  Sex: Female
  Weight: 90.5 kg

DRUGS (2)
  1. METHOTREXATE. [Concomitant]
     Active Substance: METHOTREXATE
     Indication: RHEUMATOID ARTHRITIS
     Dosage: 10 MG, WEEKLY (2.5MG; 4 TABLETS ONCE A WEEK )
     Dates: start: 202005
  2. XELJANZ [Suspect]
     Active Substance: TOFACITINIB CITRATE
     Indication: RHEUMATOID ARTHRITIS
     Dosage: 0.5 DF, 2X/DAY, (SPLITS IN HALF; HALF A TABLET IN THE MORNING AND HALF A TABLET AT NIGHT)

REACTIONS (4)
  - Cellulitis [Recovered/Resolved]
  - Limb discomfort [Unknown]
  - Off label use [Unknown]
  - Serratia bacteraemia [Unknown]

NARRATIVE: CASE EVENT DATE: 202005
